FAERS Safety Report 6096738-3 (Version None)
Quarter: 2009Q1

REPORT INFORMATION
  Report Type: 
  Country: None (occurrence: None)
  Receive Date: 20090227
  Receipt Date: 20090217
  Transmission Date: 20090719
  Serious: Yes (Other)
  Sender: FDA-Public Use
  Company Number: MY-PFIZER INC-2009173153

PATIENT

DRUGS (2)
  1. SULPERAZON [Suspect]
     Dosage: FREQUENCY: DAILY;
  2. NEXIUM [Suspect]
     Dosage: FREQUENCY: ONCE, OD;

REACTIONS (1)
  - RASH MACULO-PAPULAR [None]
